FAERS Safety Report 22018137 (Version 1)
Quarter: 2023Q1

REPORT INFORMATION
  Report Type: Spontaneous
  Country: IT (occurrence: IT)
  Receive Date: 20230221
  Receipt Date: 20230221
  Transmission Date: 20230417
  Serious: Yes (Other)
  Sender: FDA-Public Use
  Company Number: IT-JNJFOC-20230220917

PATIENT
  Age: 6 Decade
  Sex: Female

DRUGS (3)
  1. DEXAMETHASONE [Suspect]
     Active Substance: DEXAMETHASONE
     Indication: Plasma cell myeloma
     Dosage: 3 CYCLES
     Route: 065
     Dates: start: 20190327, end: 20190528
  2. CYCLOPHOSPHAMIDE [Suspect]
     Active Substance: CYCLOPHOSPHAMIDE
     Indication: Plasma cell myeloma
     Dosage: 3 CYCLES
     Route: 065
     Dates: start: 20190327, end: 20190528
  3. VELCADE [Suspect]
     Active Substance: BORTEZOMIB
     Indication: Plasma cell myeloma
     Dosage: 3 CYCLES
     Route: 065
     Dates: start: 20190327, end: 20190528

REACTIONS (1)
  - Cardiomyopathy [Unknown]
